FAERS Safety Report 6690969-7 (Version None)
Quarter: 2010Q2

REPORT INFORMATION
  Report Type: 
  Country: None (occurrence: None)
  Receive Date: 20100421
  Receipt Date: 20100408
  Transmission Date: 20101027
  Serious: Yes (Life-Threatening)
  Sender: FDA-Public Use
  Company Number: NL-GENENTECH-299310

PATIENT
  Sex: Female
  Weight: 53.9 kg

DRUGS (25)
  1. RITUXIMAB [Suspect]
     Indication: DIFFUSE LARGE B-CELL LYMPHOMA
     Dosage: 600 MG, UNK
     Route: 042
     Dates: start: 20100303
  2. RITUXIMAB [Suspect]
     Dosage: UNK
     Route: 042
     Dates: start: 20100331
  3. PEGFILGRASTIM [Suspect]
     Indication: DIFFUSE LARGE B-CELL LYMPHOMA
     Dosage: 6 MG, UNK
     Route: 058
     Dates: start: 20100304
  4. PEGFILGRASTIM [Suspect]
     Dosage: UNK
     Route: 058
     Dates: start: 20100401
  5. PREDNISONE TAB [Suspect]
     Indication: DIFFUSE LARGE B-CELL LYMPHOMA
     Dosage: 100 MG, UNK
     Route: 048
     Dates: start: 20100303
  6. PREDNISONE TAB [Suspect]
     Dosage: UNK
     Route: 048
     Dates: start: 20100331
  7. CYCLOPHOSPHAMIDE [Suspect]
     Indication: DIFFUSE LARGE B-CELL LYMPHOMA
     Dosage: 1252 MG, UNK
     Route: 042
     Dates: start: 20100303
  8. CYCLOPHOSPHAMIDE [Suspect]
     Dosage: UNK
     Route: 042
     Dates: start: 20100331
  9. DOXORUBICIN HCL [Suspect]
     Indication: DIFFUSE LARGE B-CELL LYMPHOMA
     Dosage: 83 MG, UNK
     Route: 042
     Dates: start: 20100303
  10. VINCRISTINE [Suspect]
     Indication: DIFFUSE LARGE B-CELL LYMPHOMA
     Dosage: 2 MG, UNK
     Route: 042
     Dates: start: 20100303
  11. VINCRISTINE [Suspect]
     Dosage: UNK
     Route: 042
     Dates: start: 20100331
  12. NEXIUM [Concomitant]
     Indication: REFLUX GASTRITIS
     Dosage: UNK
     Route: 048
     Dates: start: 20100304
  13. HEXASOPTIN [Concomitant]
     Indication: HYPERTENSION
     Dosage: UNK
     Route: 048
     Dates: start: 20100304
  14. HEXASOPTIN [Concomitant]
     Dosage: UNK
     Route: 048
     Dates: start: 20100330
  15. ATACAND [Concomitant]
     Indication: HYPERTENSION
     Dosage: UNK
     Route: 048
     Dates: start: 20100304
  16. ATACAND [Concomitant]
     Dosage: UNK
     Route: 048
     Dates: start: 20100330
  17. ELTROXIN [Concomitant]
     Indication: HYPOTHYROIDISM
     Dosage: UNK
     Route: 048
     Dates: start: 20100304
  18. ELTROXIN [Concomitant]
     Dosage: UNK
     Route: 048
     Dates: start: 20100330
  19. CETIRIZINE HCL [Concomitant]
     Indication: RASH
     Dosage: UNK
     Route: 048
     Dates: start: 20100304
  20. CETIRIZINE HCL [Concomitant]
     Dosage: UNK
     Route: 048
     Dates: start: 20100330
  21. MAGNESIA [Concomitant]
     Indication: CONSTIPATION
     Dosage: UNK
     Route: 048
     Dates: start: 20100304
  22. TOILAX [Concomitant]
     Indication: CONSTIPATION
     Dosage: UNK
     Route: 048
     Dates: start: 20100304
  23. PICOLON [Concomitant]
     Indication: CONSTIPATION
     Dosage: 15 UNK, QD
     Route: 048
     Dates: start: 20100304
  24. ZELITREX [Concomitant]
     Indication: DRUG USE FOR UNKNOWN INDICATION
     Dosage: 500 MG, UNK
     Route: 048
     Dates: start: 20100330, end: 20100331
  25. BACTRIM [Concomitant]
     Indication: DRUG USE FOR UNKNOWN INDICATION
     Dosage: 480 MG, UNK
     Route: 048
     Dates: start: 20100330, end: 20100331

REACTIONS (3)
  - DEHYDRATION [None]
  - GASTRITIS [None]
  - HYPOTENSION [None]
